FAERS Safety Report 9914764 (Version 1)
Quarter: 2014Q1

REPORT INFORMATION
  Report Type: Spontaneous
  Country: US (occurrence: None)
  Receive Date: 20140220
  Receipt Date: 20140220
  Transmission Date: 20141002
  Serious: Yes (Other)
  Sender: FDA-Public Use
  Company Number: US-145513

PATIENT
  Age: 43 Year
  Sex: Male
  Weight: 86.3 kg

DRUGS (5)
  1. BOTULISM ANTITOXIN [Suspect]
     Dates: start: 20140109
  2. ACETAMINOPHEN [Concomitant]
  3. DIPHENHYDRAMINE [Concomitant]
  4. ZOSYN [Concomitant]
  5. VANCOMYCIN [Concomitant]

REACTIONS (2)
  - Body temperature increased [None]
  - Blood pressure fluctuation [None]
